FAERS Safety Report 23468028 (Version 1)
Quarter: 2024Q1

REPORT INFORMATION
  Report Type: Spontaneous
  Country: CN (occurrence: CN)
  Receive Date: 20240201
  Receipt Date: 20240201
  Transmission Date: 20240409
  Serious: Yes (Other)
  Sender: FDA-Public Use
  Company Number: None

PATIENT
  Age: 55 Year
  Sex: Female
  Weight: 70 kg

DRUGS (3)
  1. CYCLOPHOSPHAMIDE [Suspect]
     Active Substance: CYCLOPHOSPHAMIDE
     Indication: Chemotherapy
     Dosage: 1 G, ONE TIME IN ONE DAY, DILUTED WITH 100 ML OF SODIUM CHLORIDE, START AT 10:30 AND COMPLETED AT 11
     Route: 041
     Dates: start: 20240125, end: 20240125
  2. CYCLOPHOSPHAMIDE [Suspect]
     Active Substance: CYCLOPHOSPHAMIDE
     Indication: Invasive breast carcinoma
  3. SODIUM CHLORIDE [Suspect]
     Active Substance: SODIUM CHLORIDE
     Indication: Chemotherapy
     Dosage: 100 ML, ONE TIME IN ONE DAY, USED TO DILUTE1 G OF CYCLOPHOSPHAMIDE, START AT 10:30, COMPLETED AT 11:
     Route: 041
     Dates: start: 20240125, end: 20240125

REACTIONS (3)
  - Gastrointestinal disorder [Unknown]
  - Nausea [Recovering/Resolving]
  - Vomiting [Recovering/Resolving]

NARRATIVE: CASE EVENT DATE: 20240126
